FAERS Safety Report 24736662 (Version 1)
Quarter: 2024Q4

REPORT INFORMATION
  Report Type: Spontaneous
  Country: FR (occurrence: FR)
  Receive Date: 20241216
  Receipt Date: 20241216
  Transmission Date: 20250114
  Serious: Yes (Hospitalization)
  Sender: TEVA
  Company Number: None

PATIENT
  Age: 50 Year
  Sex: Female

DRUGS (3)
  1. TRAMADOL [Suspect]
     Active Substance: TRAMADOL
     Indication: Intentional overdose
     Dosage: TRAMADOL BASE
     Route: 048
     Dates: start: 20241005, end: 20241005
  2. SKENAN [Suspect]
     Active Substance: MORPHINE SULFATE
     Indication: Intentional overdose
     Dosage: SKENAN L.P, PROLONGED RELEASE MICROGRANULES IN CAPSULE
     Route: 048
     Dates: start: 20241005, end: 20241005
  3. MORPHINE SULFATE [Suspect]
     Active Substance: MORPHINE SULFATE
     Indication: Intentional overdose
     Route: 048
     Dates: start: 20241005, end: 20241005

REACTIONS (5)
  - Respiratory depression [Recovered/Resolved]
  - Drug use disorder [Recovered/Resolved]
  - Coma [Recovered/Resolved]
  - Miosis [Recovered/Resolved]
  - Poisoning deliberate [Recovered/Resolved]

NARRATIVE: CASE EVENT DATE: 20241005
